FAERS Safety Report 8345432-4 (Version None)
Quarter: 2012Q2

REPORT INFORMATION
  Report Type: 
  Country: None (occurrence: None)
  Receive Date: 20120508
  Receipt Date: 20120502
  Transmission Date: 20120825
  Serious: Yes (Other)
  Sender: FDA-Public Use
  Company Number: BR-ABBOTT-12P-020-0932189-00

PATIENT
  Sex: Female
  Weight: 107 kg

DRUGS (5)
  1. NITRENDIPINO [Concomitant]
     Indication: HYPERTENSION
     Dosage: ONCE IN THE MORNING
     Route: 048
  2. DONAREN [Concomitant]
     Indication: DEPRESSION
     Dosage: A THIRD OF A TABLET- ONCE PER DAY AT BED TIME
     Route: 048
  3. CLONAZEPAM [Concomitant]
     Indication: SEDATIVE THERAPY
     Dosage: AT NIGHT
     Route: 048
  4. VENLAFAXINE HYDROCHLORIDE [Concomitant]
     Indication: DEPRESSION
     Dosage: AT NIGHT
     Route: 048
  5. DEPAKENE [Suspect]
     Indication: DEPRESSION
     Dosage: TWICE PER DAY OR 2 TOGETHER AT NIGHT
     Route: 048

REACTIONS (10)
  - WEIGHT INCREASED [None]
  - ANXIETY [None]
  - TACHYCARDIA [None]
  - PAIN [None]
  - PAIN IN EXTREMITY [None]
  - MALAISE [None]
  - TINNITUS [None]
  - BLOOD PRESSURE FLUCTUATION [None]
  - DIZZINESS [None]
  - LYMPHOMA [None]
